FAERS Safety Report 25240185 (Version 1)
Quarter: 2025Q2

REPORT INFORMATION
  Report Type: Spontaneous
  Country: CA (occurrence: CA)
  Receive Date: 20250425
  Receipt Date: 20250425
  Transmission Date: 20250717
  Serious: Yes (Death)
  Sender: PFIZER
  Company Number: CA-PFIZER INC-202500087586

PATIENT
  Age: 57 Year
  Sex: Male

DRUGS (10)
  1. HYDROMORPHONE HYDROCHLORIDE [Suspect]
     Active Substance: HYDROMORPHONE HYDROCHLORIDE
  2. AMPHETAMINE [Suspect]
     Active Substance: AMPHETAMINE
  3. CAFFEINE [Suspect]
     Active Substance: CAFFEINE
  4. DIPHENHYDRAMINE [Suspect]
     Active Substance: DIPHENHYDRAMINE
  5. FENTANYL [Suspect]
     Active Substance: FENTANYL
  6. METHADONE HYDROCHLORIDE [Suspect]
     Active Substance: METHADONE HYDROCHLORIDE
  7. METHAMPHETAMINE [Suspect]
     Active Substance: METHAMPHETAMINE
  8. MORPHINE SULFATE [Suspect]
     Active Substance: MORPHINE SULFATE
  9. NARCAN [Suspect]
     Active Substance: NALOXONE HYDROCHLORIDE
  10. PARAFLUOROFENTANYL [Suspect]
     Active Substance: PARAFLUOROFENTANYL

REACTIONS (1)
  - Toxicity to various agents [Fatal]
